FAERS Safety Report 12093573 (Version 3)
Quarter: 2016Q1

REPORT INFORMATION
  Report Type: Report from Study
  Country: US (occurrence: US)
  Receive Date: 20160219
  Receipt Date: 20160317
  Transmission Date: 20160526
  Serious: Yes (Death, Hospitalization, Other)
  Sender: FDA-Public Use
  Company Number: US-MALLINCKRODT-T201503220

PATIENT
  Age: 62 Year
  Sex: Female

DRUGS (1)
  1. REPOSITORY CORTICOTROPIN INJECTION [Suspect]
     Active Substance: CORTICOTROPIN
     Indication: SYSTEMIC LUPUS ERYTHEMATOSUS
     Dosage: 80 UNITS TWICE WKLY
     Route: 058
     Dates: start: 20141010, end: 20160201

REACTIONS (7)
  - Cerebrovascular accident [Not Recovered/Not Resolved]
  - Unresponsive to stimuli [Not Recovered/Not Resolved]
  - Altered state of consciousness [Not Recovered/Not Resolved]
  - Migraine [Unknown]
  - Fall [Unknown]
  - Unevaluable event [Unknown]
  - Pneumonia [Fatal]

NARRATIVE: CASE EVENT DATE: 201602
